FAERS Safety Report 9292947 (Version 1)
Quarter: 2013Q2

REPORT INFORMATION
  Report Type: Spontaneous
  Country: US (occurrence: US)
  Receive Date: 20130516
  Receipt Date: 20130516
  Transmission Date: 20140414
  Serious: No
  Sender: FDA-Public Use
  Company Number: US-009507513-1305USA009950

PATIENT
  Age: 9 Year
  Sex: Male
  Weight: 30.39 kg

DRUGS (3)
  1. CLARITIN ORAL SOLUTION [Suspect]
     Indication: SEASONAL ALLERGY
     Dosage: 10 MG, QD
     Route: 048
  2. CLARITIN ORAL SOLUTION [Suspect]
     Dosage: 10 MG, ONCE
     Route: 048
     Dates: start: 20130428
  3. CLARITIN ORAL SOLUTION [Suspect]
     Dosage: 10 MG, ONCE
     Route: 048
     Dates: start: 20130428

REACTIONS (1)
  - Overdose [Unknown]
